FAERS Safety Report 4719288-2 (Version None)
Quarter: 2005Q3

REPORT INFORMATION
  Report Type: 
  Country: None (occurrence: None)
  Receive Date: 20050721
  Receipt Date: 20040817
  Transmission Date: 20060218
  Serious: No
  Sender: FDA-Public Use
  Company Number: US-GLAXOSMITHKLINE-A0522474A

PATIENT
  Age: 49 Year
  Sex: Female

DRUGS (2)
  1. MALARONE [Suspect]
     Indication: MALARIA PROPHYLAXIS
     Dosage: 1TAB PER DAY
     Route: 048
     Dates: end: 20040816
  2. NO CONCURRENT MEDICATION [Concomitant]

REACTIONS (3)
  - BLISTER [None]
  - HERPES SIMPLEX [None]
  - RASH [None]
